FAERS Safety Report 10347663 (Version 6)
Quarter: 2015Q1

REPORT INFORMATION
  Report Type: Spontaneous
  Country: CH (occurrence: CH)
  Receive Date: 20140729
  Receipt Date: 20150106
  Transmission Date: 20150720
  Serious: Yes (Hospitalization, Other)
  Sender: FDA-Public Use
  Company Number: CH-TEVA-495670ISR

PATIENT
  Age: 79 Year
  Sex: Male
  Weight: 65 kg

DRUGS (10)
  1. CLEXANE [Interacting]
     Active Substance: ENOXAPARIN SODIUM
     Indication: ATRIAL FIBRILLATION
     Dosage: 160 MILLIGRAM DAILY; 80 MG, TWICE DAILY
     Route: 058
     Dates: start: 20140128, end: 20140130
  2. IRFEN [Interacting]
     Active Substance: IBUPROFEN
     Indication: THROMBOSIS PROPHYLAXIS
  3. ASPIRIN CARDIO [Interacting]
     Active Substance: ASPIRIN
     Indication: CORONARY ARTERY DISEASE
     Dosage: 100 MILLIGRAM DAILY; 100 MG, PER DAY, LONG TERM, CONTINUING
     Route: 048
  4. CRESTOR [Concomitant]
     Active Substance: ROSUVASTATIN CALCIUM
     Dosage: 5 MILLIGRAM DAILY; 5 MG, QD
     Route: 065
  5. IRFEN [Suspect]
     Active Substance: IBUPROFEN
     Indication: PAIN
     Dosage: 1200 MILLIGRAM DAILY;
     Route: 048
     Dates: start: 20140123, end: 20140130
  6. CALCIPARINE [Interacting]
     Active Substance: HEPARIN CALCIUM
     Indication: ATRIAL FIBRILLATION
     Dosage: 25000 IU (INTERNATIONAL UNIT) DAILY;
     Route: 042
     Dates: start: 20140123, end: 20140128
  7. SINTROM [Interacting]
     Active Substance: ACENOCOUMAROL
     Indication: ATRIAL FIBRILLATION
     Dosage: ACCORDING INR
     Route: 048
     Dates: start: 20140125, end: 20140130
  8. SINTROM [Interacting]
     Active Substance: ACENOCOUMAROL
     Dosage: ACCORDING INR
     Route: 048
     Dates: end: 20140120
  9. SERTRALINE [Suspect]
     Active Substance: SERTRALINE HYDROCHLORIDE
     Dosage: 50 MILLIGRAM DAILY; 50 MG, PER DAY
     Route: 065
     Dates: end: 20140123
  10. CO-DIOVAN [Interacting]
     Active Substance: HYDROCHLOROTHIAZIDE\VALSARTAN
     Indication: HYPERTENSION
     Route: 048
     Dates: end: 20140129

REACTIONS (12)
  - Paresis [Unknown]
  - Muscle haemorrhage [Recovering/Resolving]
  - Hypotension [Unknown]
  - Haemorrhage [Recovered/Resolved]
  - Quadranopia [Unknown]
  - Cerebrovascular accident [Recovered/Resolved]
  - Haemarthrosis [Unknown]
  - Drug interaction [Recovered/Resolved]
  - Acute kidney injury [Recovered/Resolved]
  - Sensorimotor disorder [Unknown]
  - Haemoglobin decreased [Recovering/Resolving]
  - Ischaemic stroke [Recovered/Resolved]

NARRATIVE: CASE EVENT DATE: 201401
